FAERS Safety Report 9392148 (Version 1)
Quarter: 2013Q3

REPORT INFORMATION
  Report Type: Spontaneous
  Country: FR (occurrence: FR)
  Receive Date: 20130709
  Receipt Date: 20130709
  Transmission Date: 20140515
  Serious: Yes (Other)
  Sender: FDA-Public Use
  Company Number: FR-ABBOTT-13X-056-1116043-00

PATIENT
  Age: 39 Year
  Sex: Male

DRUGS (3)
  1. DEPAKINE CHRONO [Suspect]
     Indication: EPILEPSY
     Dosage: EXTENDED RELEASE TABLET, 750 MILLIGRAM(S) ;TWICE A DAY
     Route: 048
     Dates: start: 2010
  2. LAMICTAL [Suspect]
     Indication: EPILEPSY
     Dosage: 100 MILLIGRAM(S) ; DAILY
     Route: 065
     Dates: start: 20130524
  3. LAMICTAL [Suspect]
     Route: 065

REACTIONS (6)
  - Arthropathy [Unknown]
  - Dry mouth [Unknown]
  - Coordination abnormal [Unknown]
  - Memory impairment [Unknown]
  - Confusional state [Unknown]
  - Medication residue present [Unknown]
